FAERS Safety Report 20172101 (Version 1)
Quarter: 2021Q4

REPORT INFORMATION
  Report Type: Spontaneous
  Country: US (occurrence: US)
  Receive Date: 20211210
  Receipt Date: 20211210
  Transmission Date: 20220303
  Serious: No
  Sender: FDA-Public Use
  Company Number: US-NOVOPROD-765256

PATIENT
  Sex: Female

DRUGS (1)
  1. LEVEMIR [Suspect]
     Active Substance: INSULIN DETEMIR
     Indication: Product used for unknown indication
     Dosage: UNK
     Route: 065

REACTIONS (7)
  - Somnolence [Unknown]
  - Arthritis [Unknown]
  - Weight increased [Not Recovered/Not Resolved]
  - Movement disorder [Unknown]
  - Injury associated with device [Unknown]
  - Blood glucose increased [Recovered/Resolved]
  - Glycosylated haemoglobin increased [Recovered/Resolved]

NARRATIVE: CASE EVENT DATE: 20201031
